FAERS Safety Report 24153289 (Version 1)
Quarter: 2024Q3

REPORT INFORMATION
  Report Type: Spontaneous
  Country: US (occurrence: US)
  Receive Date: 20240730
  Receipt Date: 20240730
  Transmission Date: 20241017
  Serious: Yes (Hospitalization, Other)
  Sender: HIKMA
  Company Number: US-MLMSERVICE-20240709-PI127491-00311-1

PATIENT
  Age: 37 Year
  Sex: Female

DRUGS (3)
  1. HYDROXYCHLOROQUINE [Interacting]
     Active Substance: HYDROXYCHLOROQUINE
     Indication: Lupus-like syndrome
     Dosage: 200 MILLIGRAM
     Route: 065
  2. PREDNISONE [Interacting]
     Active Substance: PREDNISONE
     Indication: Lupus-like syndrome
     Dosage: 40 MILLIGRAM
     Route: 065
  3. TERBINAFINE [Interacting]
     Active Substance: TERBINAFINE
     Indication: Fungal skin infection
     Dosage: 250 MILLIGRAM, QD
     Route: 065

REACTIONS (2)
  - Drug interaction [Recovering/Resolving]
  - Psoriasis [Recovering/Resolving]
